FAERS Safety Report 24594919 (Version 1)
Quarter: 2024Q4

REPORT INFORMATION
  Report Type: Spontaneous
  Country: US (occurrence: US)
  Receive Date: 20241108
  Receipt Date: 20241108
  Transmission Date: 20250114
  Serious: No
  Sender: ABBVIE
  Company Number: US-ABBVIE-5990640

PATIENT
  Sex: Female

DRUGS (4)
  1. ASACOL [Suspect]
     Active Substance: MESALAMINE
     Indication: Product used for unknown indication
     Route: 065
     Dates: start: 2005
  2. PREDNISOLONE [Concomitant]
     Active Substance: PREDNISOLONE
     Indication: Arthritis
  3. VITAMINS [Concomitant]
     Active Substance: VITAMINS
     Indication: Rheumatoid arthritis
  4. MINERALS\VITAMINS [Concomitant]
     Active Substance: MINERALS\VITAMINS
     Indication: Rheumatoid arthritis

REACTIONS (1)
  - Weight increased [Unknown]
